FAERS Safety Report 11869857 (Version 1)
Quarter: 2015Q4

REPORT INFORMATION
  Report Type: Spontaneous
  Country: US (occurrence: US)
  Receive Date: 20151228
  Receipt Date: 20151228
  Transmission Date: 20160305
  Serious: Yes (Other)
  Sender: FDA-Public Use
  Company Number: US-CIPLA LTD.-2015US09652

PATIENT

DRUGS (3)
  1. RISPERIDONE. [Suspect]
     Active Substance: RISPERIDONE
     Dosage: MOTHER TOOK 3 MG/DAY
     Route: 064
  2. PRAZEPAM [Suspect]
     Active Substance: PRAZEPAM
     Route: 064
  3. ZUCLOPENTHIXOL [Suspect]
     Active Substance: ZUCLOPENTHIXOL
     Indication: PSYCHOTIC DISORDER
     Route: 064

REACTIONS (12)
  - Hypertonia [Recovered/Resolved]
  - Dyskinesia [Unknown]
  - Maternal drugs affecting foetus [None]
  - Hypotonia [Recovered/Resolved]
  - Developmental coordination disorder [Unknown]
  - Primitive reflex test positive [Unknown]
  - Delayed myelination [Unknown]
  - Foetal exposure during pregnancy [Unknown]
  - Poor sucking reflex [Unknown]
  - Agitation [Not Recovered/Not Resolved]
  - Irritability [Unknown]
  - Congenital eye disorder [Unknown]
